FAERS Safety Report 8540800-X (Version None)
Quarter: 2012Q3

REPORT INFORMATION
  Report Type: 
  Country: None (occurrence: None)
  Receive Date: 20120726
  Receipt Date: 20120711
  Transmission Date: 20120928
  Serious: Yes (Hospitalization, Disabling, Other)
  Sender: FDA-Public Use
  Company Number: US-009507513-1102USA02523

PATIENT

DRUGS (4)
  1. FOSAMAX PLUS D [Suspect]
     Indication: OSTEOPOROSIS
  2. FOSAMAX [Suspect]
     Indication: OSTEOPOROSIS
  3. FOSAMAX PLUS D [Suspect]
     Indication: OSTEOPENIA
     Dosage: 70MG/2800
     Route: 048
     Dates: start: 20060601, end: 20091001
  4. FOSAMAX [Suspect]
     Indication: OSTEOPENIA
     Dosage: 70 MG, QW
     Route: 048
     Dates: start: 20031016, end: 20060622

REACTIONS (87)
  - JOINT INJURY [None]
  - FRACTURE NONUNION [None]
  - TOOTH DISORDER [None]
  - ANXIETY [None]
  - POST-TRAUMATIC STRESS DISORDER [None]
  - EYELID DISORDER [None]
  - STAPHYLOCOCCAL INFECTION [None]
  - SPINAL DISORDER [None]
  - LYMPHADENOPATHY [None]
  - NEPHROSCLEROSIS [None]
  - DYSPNOEA [None]
  - VITAMIN D DEFICIENCY [None]
  - NECROSIS [None]
  - BONE DISORDER [None]
  - HYPERPARATHYROIDISM SECONDARY [None]
  - INSOMNIA [None]
  - SPINAL OSTEOARTHRITIS [None]
  - INCREASED TENDENCY TO BRUISE [None]
  - RENAL FAILURE ACUTE [None]
  - HYPERTENSION [None]
  - DEPRESSION [None]
  - AMINO ACID LEVEL INCREASED [None]
  - MIGRAINE [None]
  - HYPOACUSIS [None]
  - OBSTRUCTIVE UROPATHY [None]
  - SYNOVIAL CYST [None]
  - DEAFNESS [None]
  - GINGIVAL ABSCESS [None]
  - APPENDIX DISORDER [None]
  - FEMUR FRACTURE [None]
  - NEPHROLITHIASIS [None]
  - MITRAL VALVE PROLAPSE [None]
  - SURGICAL FAILURE [None]
  - TACHYCARDIA [None]
  - FATIGUE [None]
  - URINARY INCONTINENCE [None]
  - CERVICAL DYSPLASIA [None]
  - TRICHOTILLOMANIA [None]
  - OEDEMA PERIPHERAL [None]
  - HAEMORRHOIDS [None]
  - COUGH [None]
  - APICAL GRANULOMA [None]
  - OSTEOARTHRITIS [None]
  - INFECTION [None]
  - OSTEOPOROSIS [None]
  - ANAEMIA [None]
  - MYOSITIS [None]
  - CARDIAC MURMUR [None]
  - IRON DEFICIENCY ANAEMIA [None]
  - PULMONARY ARTERIAL HYPERTENSION [None]
  - RENAL FAILURE [None]
  - FALL [None]
  - DYSPHONIA [None]
  - DYSPEPSIA [None]
  - RETINOPATHY HYPERTENSIVE [None]
  - ABASIA [None]
  - OSTEONECROSIS [None]
  - FOOT FRACTURE [None]
  - BACK PAIN [None]
  - LIMB ASYMMETRY [None]
  - HIATUS HERNIA [None]
  - CARPAL TUNNEL SYNDROME [None]
  - MACULAR DEGENERATION [None]
  - OROPHARYNGEAL PAIN [None]
  - MULTI-ORGAN FAILURE [None]
  - MUSCLE SPASMS [None]
  - SLEEP APNOEA SYNDROME [None]
  - PAIN [None]
  - DIVERTICULUM INTESTINAL [None]
  - GASTRITIS [None]
  - DYSPHAGIA [None]
  - WEIGHT INCREASED [None]
  - DIZZINESS [None]
  - ASTHENIA [None]
  - HERPES ZOSTER [None]
  - GASTROINTESTINAL DISORDER [None]
  - SHOCK HAEMORRHAGIC [None]
  - DISSEMINATED INTRAVASCULAR COAGULATION [None]
  - ANAEMIA OF CHRONIC DISEASE [None]
  - RENAL FAILURE CHRONIC [None]
  - CATARACT [None]
  - ASTHMA [None]
  - GASTRIC ULCER [None]
  - ARTHRALGIA [None]
  - URINARY TRACT INFECTION [None]
  - DEHYDRATION [None]
  - PEPTIC ULCER [None]
